FAERS Safety Report 16907287 (Version 1)
Quarter: 2019Q4

REPORT INFORMATION
  Report Type: Spontaneous
  Country: US (occurrence: US)
  Receive Date: 20191011
  Receipt Date: 20191011
  Transmission Date: 20200122
  Serious: No
  Sender: FDA-Public Use
  Company Number: US-SUNOVION-2019SUN004096

PATIENT
  Sex: Female

DRUGS (1)
  1. LATUDA [Suspect]
     Active Substance: LURASIDONE HYDROCHLORIDE
     Dosage: 60 MG
     Route: 048

REACTIONS (5)
  - Memory impairment [Unknown]
  - General physical health deterioration [Unknown]
  - Feeling abnormal [Unknown]
  - Depression [Unknown]
  - Product dose omission [Unknown]
